FAERS Safety Report 12614131 (Version 4)
Quarter: 2016Q4

REPORT INFORMATION
  Report Type: Spontaneous
  Country: JP (occurrence: JP)
  Receive Date: 20160802
  Receipt Date: 20161006
  Transmission Date: 20170207
  Serious: Yes (Death, Hospitalization)
  Sender: FDA-Public Use
  Company Number: JP-SA-2016SA139017

PATIENT
  Age: 86 Year
  Sex: Female
  Weight: 33.7 kg

DRUGS (9)
  1. RIFADIN [Suspect]
     Active Substance: RIFAMPIN
     Indication: CUTANEOUS TUBERCULOSIS
     Route: 065
     Dates: start: 2014
  2. ETHAMBUTOL [Suspect]
     Active Substance: ETHAMBUTOL HYDROCHLORIDE
     Indication: DISSEMINATED TUBERCULOSIS
     Route: 065
  3. CRAVIT [Suspect]
     Active Substance: LEVOFLOXACIN
     Indication: DISSEMINATED TUBERCULOSIS
     Route: 065
     Dates: start: 2014
  4. CRAVIT [Suspect]
     Active Substance: LEVOFLOXACIN
     Indication: CUTANEOUS TUBERCULOSIS
     Route: 065
     Dates: start: 2014
  5. ISONIAZID. [Suspect]
     Active Substance: ISONIAZID
     Indication: DISSEMINATED TUBERCULOSIS
     Route: 065
     Dates: start: 2014
  6. RIFADIN [Suspect]
     Active Substance: RIFAMPIN
     Indication: DISSEMINATED TUBERCULOSIS
     Route: 065
     Dates: start: 2014
  7. ETHAMBUTOL [Suspect]
     Active Substance: ETHAMBUTOL HYDROCHLORIDE
     Indication: CUTANEOUS TUBERCULOSIS
     Route: 065
  8. PREDNISOLONE. [Suspect]
     Active Substance: PREDNISOLONE
     Indication: DERMATITIS BULLOUS
     Route: 048
     Dates: start: 2005
  9. ISONIAZID. [Suspect]
     Active Substance: ISONIAZID
     Indication: CUTANEOUS TUBERCULOSIS
     Route: 065
     Dates: start: 2014

REACTIONS (26)
  - Erythema [Not Recovered/Not Resolved]
  - Mycobacterium tuberculosis complex test positive [Fatal]
  - Rales [Fatal]
  - Pulmonary oedema [Fatal]
  - Pleural effusion [Fatal]
  - Hypoxia [Fatal]
  - Disseminated tuberculosis [Fatal]
  - Productive cough [Fatal]
  - Acute respiratory distress syndrome [Fatal]
  - Swelling [Not Recovered/Not Resolved]
  - Excessive granulation tissue [Not Recovered/Not Resolved]
  - Purulent discharge [Not Recovered/Not Resolved]
  - White blood cell count increased [Fatal]
  - Dyspnoea [Fatal]
  - Skin ulcer [Not Recovered/Not Resolved]
  - Lymphocyte percentage increased [Fatal]
  - Drug ineffective [Unknown]
  - Respiratory rate decreased [Fatal]
  - Heart rate increased [Fatal]
  - Lupus vulgaris [Not Recovered/Not Resolved]
  - Neutrophil percentage increased [Fatal]
  - C-reactive protein increased [Fatal]
  - Computerised tomogram thorax abnormal [Fatal]
  - Pyrexia [Fatal]
  - Blood pressure decreased [Fatal]
  - Disease progression [Fatal]

NARRATIVE: CASE EVENT DATE: 2013
